FAERS Safety Report 17804006 (Version 2)
Quarter: 2020Q2

REPORT INFORMATION
  Report Type: Report from Study
  Country: ID (occurrence: ID)
  Receive Date: 20200519
  Receipt Date: 20200612
  Transmission Date: 20200714
  Serious: Yes (Death, Other)
  Sender: FDA-Public Use
  Company Number: ID-009507513-2005IDN005759

PATIENT
  Sex: Male

DRUGS (1)
  1. PEMBROLIZUMAB. [Suspect]
     Active Substance: PEMBROLIZUMAB
     Indication: NON-SMALL CELL LUNG CANCER
     Dosage: 200 MG/2 VIAL (STRENGTH: 100 MG/ 4 ML)
     Route: 042
     Dates: start: 20200509

REACTIONS (1)
  - Death [Fatal]

NARRATIVE: CASE EVENT DATE: 20200514
